FAERS Safety Report 4596225-5 (Version None)
Quarter: 2005Q1

REPORT INFORMATION
  Report Type: 
  Country: None (occurrence: None)
  Receive Date: 20050302
  Receipt Date: 20050215
  Transmission Date: 20050727
  Serious: Yes (Hospitalization)
  Sender: FDA-Public Use
  Company Number: US-GLAXOSMITHKLINE-A0546142A

PATIENT
  Age: 70 Year
  Sex: Female
  Weight: 52 kg

DRUGS (3)
  1. NICODERM CQ [Suspect]
     Indication: SMOKING CESSATION THERAPY
     Route: 062
     Dates: start: 20050201
  2. ANTIBIOTICS [Concomitant]
     Indication: PNEUMONIA
  3. STEROIDS [Concomitant]
     Indication: PNEUMONIA

REACTIONS (1)
  - LUNG NEOPLASM [None]
